FAERS Safety Report 14213353 (Version 1)
Quarter: 2017Q4

REPORT INFORMATION
  Report Type: Spontaneous
  Country: SI (occurrence: SI)
  Receive Date: 20171122
  Receipt Date: 20171122
  Transmission Date: 20180321
  Serious: Yes (Other)
  Sender: FDA-Public Use
  Company Number: SI-009507513-1711SVN008287

PATIENT
  Age: 5 Year
  Sex: Male

DRUGS (1)
  1. SINGULAIR [Suspect]
     Active Substance: MONTELUKAST SODIUM
     Indication: BRONCHITIS
     Dosage: STRENGTH: 4 MG GRANULES, USUALLY THE THERAPY LASTS ONE WEEK (STILL ONGOING ^INTERMITTENTLY^)
     Dates: start: 201603

REACTIONS (4)
  - Product use in unapproved indication [Unknown]
  - Enuresis [Unknown]
  - Abnormal dreams [Unknown]
  - Sleep disorder [Unknown]

NARRATIVE: CASE EVENT DATE: 201603
